FAERS Safety Report 7605896-8 (Version None)
Quarter: 2011Q3

REPORT INFORMATION
  Report Type: 
  Country: None (occurrence: None)
  Receive Date: 20110713
  Receipt Date: 20110706
  Transmission Date: 20111222
  Serious: Yes (Other)
  Sender: FDA-Public Use
  Company Number: US-BAYER-2011-059319

PATIENT
  Age: 60 Year
  Sex: Female
  Weight: 62 kg

DRUGS (1)
  1. ONE-A-DAY WOMEN'S 50 + ADVANTAGE [Suspect]
     Dosage: 1 DF, QD
     Route: 048
     Dates: start: 20110706

REACTIONS (4)
  - CHOKING [None]
  - OROPHARYNGEAL PAIN [None]
  - FOREIGN BODY [None]
  - DYSPNOEA [None]
